FAERS Safety Report 15543866 (Version 1)
Quarter: 2018Q4

REPORT INFORMATION
  Report Type: Spontaneous
  Country: US (occurrence: US)
  Receive Date: 20181023
  Receipt Date: 20181023
  Transmission Date: 20190205
  Serious: No
  Sender: FDA-Public Use
  Company Number: US-BAUSCH-BL-2018-026659

PATIENT
  Age: 64 Year
  Sex: Male

DRUGS (2)
  1. ELIDEL [Suspect]
     Active Substance: PIMECROLIMUS
     Indication: RASH
     Dosage: 1-2 APPLICATIONS A DAY
     Route: 061
     Dates: start: 2015
  2. ELIDEL [Suspect]
     Active Substance: PIMECROLIMUS
     Dosage: 1-2 APPLICATIONS A DAY
     Route: 061

REACTIONS (3)
  - Product quality issue [Not Recovered/Not Resolved]
  - Rash [Not Recovered/Not Resolved]
  - Drug ineffective [Not Recovered/Not Resolved]
